FAERS Safety Report 7833407-0 (Version None)
Quarter: 2011Q4

REPORT INFORMATION
  Report Type: 
  Country: None (occurrence: None)
  Receive Date: 20111024
  Receipt Date: 20111020
  Transmission Date: 20120403
  Serious: Yes (Other)
  Sender: FDA-Public Use
  Company Number: US-PFIZER INC-2011254557

PATIENT
  Sex: Male
  Weight: 113 kg

DRUGS (6)
  1. COUMADIN [Concomitant]
     Indication: THROMBOSIS
     Dosage: UNK
  2. LANOXIN [Concomitant]
     Indication: CARDIAC DISORDER
     Dosage: UNK
  3. LASIX [Concomitant]
     Indication: FLUID RETENTION
     Dosage: UNK
  4. KLOR-CON [Concomitant]
     Indication: BLOOD POTASSIUM ABNORMAL
     Dosage: UNK
  5. LEVOTHYROXINE [Concomitant]
     Indication: THYROID DISORDER
     Dosage: UNK
  6. TIKOSYN [Suspect]
     Indication: ATRIAL FIBRILLATION
     Dosage: 0.5 MG, 2X/DAY
     Route: 048
     Dates: start: 20030801

REACTIONS (3)
  - PYREXIA [None]
  - INCREASED UPPER AIRWAY SECRETION [None]
  - INFLUENZA [None]
